FAERS Safety Report 4797855-8 (Version None)
Quarter: 2005Q3

REPORT INFORMATION
  Report Type: 
  Country: None (occurrence: None)
  Receive Date: 20050929
  Receipt Date: 20050630
  Transmission Date: 20060218
  Serious: No
  Sender: FDA-Public Use
  Company Number: 05P-163-0297696-00

PATIENT
  Age: 56 Year
  Sex: Female
  Weight: 44.4525 kg

DRUGS (5)
  1. HUMIRA [Suspect]
     Indication: RHEUMATOID ARTHRITIS
     Dosage: 40 MG, 1 IN 2 WK, SUBCUTANEOUS
     Route: 058
     Dates: start: 20040101, end: 20050412
  2. DEXTROMETHORPHAN HYDROBROMIDE [Suspect]
     Indication: COUGH
     Dosage: PER ORAL
     Route: 048
     Dates: start: 20050409
  3. BEXTRA [Suspect]
     Indication: RHEUMATOID ARTHRITIS
     Dosage: PER ORAL
     Route: 048
     Dates: end: 20050401
  4. RALOXIFENE HYDROCHLORIDE [Concomitant]
  5. CELECOXIB [Concomitant]

REACTIONS (10)
  - ANOREXIA [None]
  - COUGH [None]
  - FATIGUE [None]
  - HEPATIC ENZYME INCREASED [None]
  - NAUSEA [None]
  - PLATELET COUNT DECREASED [None]
  - UPPER RESPIRATORY TRACT INFECTION [None]
  - URTICARIA [None]
  - VOMITING [None]
  - WHITE BLOOD CELL COUNT DECREASED [None]
